FAERS Safety Report 9265783 (Version 1)
Quarter: 2013Q2

REPORT INFORMATION
  Report Type: Spontaneous
  Country: US (occurrence: US)
  Receive Date: 20130501
  Receipt Date: 20130501
  Transmission Date: 20140414
  Serious: Yes (Other)
  Sender: FDA-Public Use
  Company Number: US-GLAXOSMITHKLINE-A1021317A

PATIENT
  Age: 56 Year
  Sex: Female

DRUGS (6)
  1. ADVAIR [Suspect]
     Dosage: 1PUFF TWICE PER DAY
     Route: 055
     Dates: start: 2013
  2. HYDROCODONE [Concomitant]
  3. LEVOTHYROXINE [Concomitant]
  4. PREMARIN [Concomitant]
  5. ALPRAZOLAM [Concomitant]
  6. VITAMIN D [Concomitant]

REACTIONS (4)
  - Hypersensitivity [Recovered/Resolved]
  - Pharyngeal oedema [Recovered/Resolved]
  - Oropharyngeal blistering [Recovered/Resolved]
  - Bronchospasm [Recovered/Resolved]
